FAERS Safety Report 16832126 (Version 1)
Quarter: 2019Q3

REPORT INFORMATION
  Report Type: Spontaneous
  Country: US (occurrence: US)
  Receive Date: 20190920
  Receipt Date: 20190920
  Transmission Date: 20191005
  Serious: No
  Sender: FDA-Public Use
  Company Number: US-ORPHAN EUROPE-2074708

PATIENT
  Age: 34 Year
  Sex: Male

DRUGS (1)
  1. CYSTADANE [Suspect]
     Active Substance: BETAINE
     Indication: PRODUCT USED FOR UNKNOWN INDICATION
     Route: 048

REACTIONS (3)
  - Diarrhoea [Unknown]
  - Chest discomfort [Unknown]
  - Headache [Unknown]

NARRATIVE: CASE EVENT DATE: 201812
